FAERS Safety Report 4441026-1 (Version None)
Quarter: 2004Q3

REPORT INFORMATION
  Report Type: 
  Country: None (occurrence: None)
  Receive Date: 20040902
  Receipt Date: 20040902
  Transmission Date: 20050211
  Serious: Yes (Hospitalization)
  Sender: FDA-Public Use
  Company Number: None

PATIENT
  Age: 51 Year
  Sex: Male
  Weight: 127.3 kg

DRUGS (11)
  1. TERAZOSIN HCL [Suspect]
     Indication: BENIGN PROSTATIC HYPERPLASIA
     Dosage: 5 MG DAILY ORAL
     Route: 048
     Dates: end: 20040617
  2. IRBESARTAN [Concomitant]
  3. POTASSIUM CHLORIDE [Concomitant]
  4. FLUOXETINE HCL [Concomitant]
  5. ASPIRIN [Concomitant]
  6. FUROSEMIDE [Concomitant]
  7. HYDRALAZINE HCL [Concomitant]
  8. ALPROSTADIL [Concomitant]
  9. ALPRAZOLAM [Concomitant]
  10. ADALAT CC [Concomitant]
  11. FOSINOPRIL NA [Concomitant]

REACTIONS (2)
  - ORTHOSTATIC HYPOTENSION [None]
  - SYNCOPE [None]
